FAERS Safety Report 7987066-7 (Version None)
Quarter: 2011Q4

REPORT INFORMATION
  Report Type: 
  Country: None (occurrence: None)
  Receive Date: 20111216
  Receipt Date: 20110927
  Transmission Date: 20120403
  Serious: No
  Sender: FDA-Public Use
  Company Number: US-BRISTOL-MYERS SQUIBB COMPANY-16100943

PATIENT
  Age: 6 Year
  Sex: Male

DRUGS (3)
  1. ABILIFY [Suspect]
     Dosage: 1 DF:SPLITTING THE 15MG IN HALF AND THEN CHEWING,ONE-HALF TAB DAILY,EARLIEST FILLED 20OCT10
  2. CLONAZEPAM [Concomitant]
     Dosage: CLONAZEPAM ODT
  3. TRILEPTAL [Concomitant]

REACTIONS (1)
  - MEDICATION ERROR [None]
